FAERS Safety Report 7078067-4 (Version None)
Quarter: 2010Q4

REPORT INFORMATION
  Report Type: 
  Country: None (occurrence: None)
  Receive Date: 20101102
  Receipt Date: 20101022
  Transmission Date: 20110411
  Serious: No
  Sender: FDA-Public Use
  Company Number: US-BIOGENIDEC-2010BI037115

PATIENT
  Age: 25 Year
  Sex: Female

DRUGS (2)
  1. TYSABRI [Suspect]
     Indication: MULTIPLE SCLEROSIS
     Route: 042
     Dates: start: 20071101
  2. FLU SHOT [Concomitant]
     Indication: PROPHYLAXIS
     Dates: start: 20101015

REACTIONS (3)
  - FATIGUE [None]
  - MUSCLE SPASMS [None]
  - NAUSEA [None]
